FAERS Safety Report 6102340-7 (Version None)
Quarter: 2009Q1

REPORT INFORMATION
  Report Type: 
  Country: None (occurrence: None)
  Receive Date: 20090304
  Receipt Date: 20090220
  Transmission Date: 20090719
  Serious: Yes (Other)
  Sender: FDA-Public Use
  Company Number: US-BAYER-200913755NA

PATIENT
  Age: 25 Year
  Sex: Male
  Weight: 93 kg

DRUGS (1)
  1. MAGNEVIST [Suspect]
     Indication: DRUG USE FOR UNKNOWN INDICATION
     Dosage: TOTAL DAILY DOSE: 18 ML  UNIT DOSE: 20 ML
     Route: 042
     Dates: start: 20090218, end: 20090218

REACTIONS (4)
  - ASTHMA [None]
  - THROAT IRRITATION [None]
  - URTICARIA [None]
  - WHEEZING [None]
